FAERS Safety Report 12766276 (Version 1)
Quarter: 2016Q3

REPORT INFORMATION
  Report Type: Spontaneous
  Country: US (occurrence: US)
  Receive Date: 20160920
  Receipt Date: 20160920
  Transmission Date: 20161109
  Serious: Yes (Other)
  Sender: FDA-Public Use
  Company Number: None

PATIENT
  Age: 69 Year
  Sex: Female
  Weight: 62.1 kg

DRUGS (11)
  1. ESTROGEN [Concomitant]
     Active Substance: ESTRONE\SUS SCROFA OVARY
  2. PROGESTERONE. [Concomitant]
     Active Substance: PROGESTERONE
  3. CALCIUM [Concomitant]
     Active Substance: CALCIUM
  4. MULTIPLE VITAMIN [Concomitant]
     Active Substance: VITAMINS
  5. ACIDOPHOLUS [Concomitant]
  6. VITAMIN B [Concomitant]
     Active Substance: VITAMIN B
  7. NAPROSEN [Concomitant]
  8. KIRKLAND SIGNATURE ALLER TEC D [Suspect]
     Active Substance: CETIRIZINE HYDROCHLORIDE\PSEUDOEPHEDRINE HYDROCHLORIDE
     Indication: PRODUCT USED FOR UNKNOWN INDICATION
     Route: 048
     Dates: start: 20160901, end: 20160917
  9. MAGNESIUM [Concomitant]
     Active Substance: MAGNESIUM
  10. FISH OIL [Concomitant]
     Active Substance: FISH OIL
  11. VITAMIN B12 [Concomitant]
     Active Substance: CYANOCOBALAMIN

REACTIONS (8)
  - Anxiety [None]
  - Emotional disorder [None]
  - Muscle tightness [None]
  - Hyperaesthesia [None]
  - Aggression [None]
  - Nervousness [None]
  - Discomfort [None]
  - Anger [None]

NARRATIVE: CASE EVENT DATE: 20160916
